FAERS Safety Report 25401684 (Version 1)
Quarter: 2025Q2

REPORT INFORMATION
  Report Type: Report from Study
  Country: ES (occurrence: ES)
  Receive Date: 20250605
  Receipt Date: 20250605
  Transmission Date: 20250716
  Serious: Yes (Hospitalization, Other)
  Sender: ABBVIE
  Company Number: ES-ABBVIE-6308284

PATIENT
  Age: 63 Year
  Sex: Male

DRUGS (2)
  1. RISANKIZUMAB [Suspect]
     Active Substance: RISANKIZUMAB
     Indication: Psoriasis
     Route: 058
     Dates: start: 20210707, end: 20210901
  2. calcipotriol/Betametasona [Concomitant]
     Indication: Psoriasis
     Dosage: 1 APPLICATION DAILY
     Route: 061
     Dates: start: 20170919

REACTIONS (3)
  - Umbilical hernia [Recovered/Resolved]
  - Cholelithiasis [Recovered/Resolved]
  - Cholecystitis chronic [Recovered/Resolved]

NARRATIVE: CASE EVENT DATE: 20210826
